FAERS Safety Report 17877257 (Version 3)
Quarter: 2020Q3

REPORT INFORMATION
  Report Type: Spontaneous
  Country: FR (occurrence: FR)
  Receive Date: 20200609
  Receipt Date: 20200721
  Transmission Date: 20201103
  Serious: Yes (Death, Hospitalization, Other)
  Sender: FDA-Public Use
  Company Number: FR-BAUSCH-BL-2020-016480

PATIENT
  Age: 60 Year
  Sex: Female

DRUGS (4)
  1. METFORMIN [Suspect]
     Active Substance: METFORMIN HYDROCHLORIDE
     Indication: DIABETES MELLITUS
     Route: 065
  2. FASLODEX [Concomitant]
     Active Substance: FULVESTRANT
     Indication: BREAST CANCER
     Route: 065
  3. VERZENIO [Interacting]
     Active Substance: ABEMACICLIB
     Indication: METASTASES TO LIVER
  4. VERZENIO [Interacting]
     Active Substance: ABEMACICLIB
     Indication: BREAST CANCER
     Dosage: STOPPED AFTER 3 DAYS
     Route: 065
     Dates: start: 202004, end: 20200417

REACTIONS (13)
  - Anuria [Fatal]
  - Ketoacidosis [Fatal]
  - Lactic acidosis [Fatal]
  - Drug interaction [Fatal]
  - Renal impairment [Fatal]
  - Hepatic failure [Fatal]
  - Renal failure [Fatal]
  - Abdominal pain [Fatal]
  - Toxicity to various agents [Fatal]
  - General physical health deterioration [Fatal]
  - Cardiac arrest [Fatal]
  - Dehydration [Fatal]
  - Blood creatinine increased [Fatal]

NARRATIVE: CASE EVENT DATE: 202004
